FAERS Safety Report 8357284-7 (Version None)
Quarter: 2012Q2

REPORT INFORMATION
  Report Type: 
  Country: None (occurrence: None)
  Receive Date: 20120514
  Receipt Date: 20120507
  Transmission Date: 20120825
  Serious: Yes (Other)
  Sender: FDA-Public Use
  Company Number: PHHY2009JP41692

PATIENT
  Sex: Male
  Weight: 46 kg

DRUGS (11)
  1. TASIGNA [Suspect]
     Indication: CHRONIC MYELOID LEUKAEMIA
     Dosage: 200 MG, DAILY
     Route: 048
     Dates: start: 20090811, end: 20091112
  2. TASIGNA [Suspect]
     Dosage: 400 MG/DAY
     Route: 048
     Dates: start: 20101001, end: 20110113
  3. TASIGNA [Suspect]
     Dosage: 200 MG/DAY
     Route: 048
     Dates: start: 20110114
  4. TASIGNA [Suspect]
     Dosage: 800 MG/DAY
     Route: 048
     Dates: start: 20100812, end: 20100819
  5. TASIGNA [Suspect]
     Dosage: 600 MG, DAILY
     Route: 048
     Dates: start: 20100820, end: 20100914
  6. EBASTINE [Concomitant]
     Dosage: 10 MG, UNK
     Route: 048
     Dates: start: 20110318
  7. OLOPATADINE HCL [Concomitant]
     Dosage: 10 MG, UNK
     Route: 048
     Dates: start: 20101102, end: 20111213
  8. ALLEGRA [Concomitant]
     Indication: PRURITUS
     Dosage: 60 MG, UNK
     Route: 048
     Dates: start: 20100414, end: 20111101
  9. TASIGNA [Suspect]
     Dosage: 400 MG/DAY
     Route: 048
     Dates: start: 20091113, end: 20100329
  10. TASIGNA [Suspect]
     Dosage: 600 MG/DAY
     Route: 048
     Dates: start: 20100330, end: 20100811
  11. LIDOMEX [Concomitant]
     Dosage: 10 G, UNK
     Route: 061
     Dates: start: 20091027

REACTIONS (4)
  - DRY SKIN [None]
  - ELECTROCARDIOGRAM QT PROLONGED [None]
  - HEPATIC FUNCTION ABNORMAL [None]
  - JAUNDICE [None]
